FAERS Safety Report 7389532-4 (Version None)
Quarter: 2011Q2

REPORT INFORMATION
  Report Type: 
  Country: None (occurrence: None)
  Receive Date: 20110401
  Receipt Date: 20110321
  Transmission Date: 20111010
  Serious: Yes (Other)
  Sender: FDA-Public Use
  Company Number: PHHY2011US23281

PATIENT
  Sex: Male

DRUGS (4)
  1. DIOVAN [Suspect]
     Dosage: 160 MG, QD
  2. NEXIUM [Concomitant]
  3. LIPITOR [Concomitant]
  4. NORVASC [Concomitant]
     Dosage: UNK

REACTIONS (3)
  - HYPERHIDROSIS [None]
  - RASH [None]
  - CARDIAC VALVE DISEASE [None]
